FAERS Safety Report 11686172 (Version 1)
Quarter: 2015Q4

REPORT INFORMATION
  Report Type: Spontaneous
  Country: US (occurrence: US)
  Receive Date: 20151030
  Receipt Date: 20151030
  Transmission Date: 20160304
  Serious: Yes (Death, Hospitalization, Other)
  Sender: FDA-Public Use
  Company Number: US-TEVA-603490USA

PATIENT
  Age: 25 Year
  Sex: Male

DRUGS (1)
  1. PROPOFOL. [Suspect]
     Active Substance: PROPOFOL
     Indication: SEDATION
     Dosage: 75-100 MICROG/KG/MIN
     Route: 065

REACTIONS (2)
  - Cardiogenic shock [Fatal]
  - Propofol infusion syndrome [Fatal]
